FAERS Safety Report 8356491-7 (Version None)
Quarter: 2012Q2

REPORT INFORMATION
  Report Type: 
  Country: None (occurrence: None)
  Receive Date: 20120511
  Receipt Date: 20120511
  Transmission Date: 20120825
  Serious: Yes (Hospitalization)
  Sender: FDA-Public Use
  Company Number: None

PATIENT
  Sex: Male
  Weight: 86.77 kg

DRUGS (5)
  1. CYCLOPHOSPHAMIDE [Suspect]
     Dosage: 4702 MG
  2. RITUXIMAB (MOAB C2B8 ANTI CD20, CHIMERIC) [Suspect]
     Dosage: 2351.5 MG
  3. PREDNISONE TAB [Suspect]
     Dosage: 1678 MG
  4. VINCRISTINE SULFATE [Suspect]
     Dosage: 6 MG
  5. DOXORUBICIN HYDROCHLORIDE [Suspect]
     Dosage: 313 MG

REACTIONS (9)
  - WHITE BLOOD CELL COUNT DECREASED [None]
  - TACHYPNOEA [None]
  - HYPONATRAEMIA [None]
  - LYMPHOCYTE COUNT DECREASED [None]
  - FEBRILE NEUTROPENIA [None]
  - HYPOXIA [None]
  - SEPSIS [None]
  - HYPOALBUMINAEMIA [None]
  - PNEUMONIA [None]
